FAERS Safety Report 20483921 (Version 1)
Quarter: 2022Q1

REPORT INFORMATION
  Report Type: Report from Study
  Country: GB (occurrence: GB)
  Receive Date: 20220217
  Receipt Date: 20220217
  Transmission Date: 20220424
  Serious: Yes (Other)
  Sender: FDA-Public Use
  Company Number: GB-NOVARTISPH-NVSC2021GB106967

PATIENT
  Age: 81 Year
  Sex: Female

DRUGS (5)
  1. KISQALI [Suspect]
     Active Substance: RIBOCICLIB
     Indication: Breast cancer
     Dosage: 200 MG, BID
     Route: 048
     Dates: start: 20210428
  2. KISQALI [Suspect]
     Active Substance: RIBOCICLIB
     Dosage: 200 MG, BID
     Route: 048
  3. KISQALI [Suspect]
     Active Substance: RIBOCICLIB
     Dosage: 400 MG, QD
     Route: 048
  4. KISQALI [Suspect]
     Active Substance: RIBOCICLIB
     Dosage: 200 MG, BID
     Route: 048
     Dates: start: 20210428, end: 20220207
  5. KISQALI [Suspect]
     Active Substance: RIBOCICLIB
     Dosage: 600 MG,QD
     Route: 048

REACTIONS (13)
  - Breast cancer [Unknown]
  - Malignant neoplasm progression [Unknown]
  - Lung neoplasm malignant [Not Recovered/Not Resolved]
  - Nasal discomfort [Unknown]
  - Neck pain [Unknown]
  - Fatigue [Unknown]
  - Nausea [Unknown]
  - Pruritus [Unknown]
  - Pain [Unknown]
  - Depression [Unknown]
  - Depressed mood [Unknown]
  - Dyspnoea [Not Recovered/Not Resolved]
  - Inappropriate schedule of product administration [Unknown]
